FAERS Safety Report 5209981-X (Version None)
Quarter: 2006Q4

REPORT INFORMATION
  Report Type: 
  Country: None (occurrence: None)
  Receive Date: 20061128
  Receipt Date: 20051025
  Transmission Date: 20070319
  Serious: Yes (Hospitalization, Other)
  Sender: FDA-Public Use
  Company Number: 2005132002

PATIENT
  Age: 53 Year
  Sex: Male
  Weight: 92.9874 kg

DRUGS (10)
  1. TIKOSYN [Suspect]
     Indication: ATRIAL FIBRILLATION
     Dosage: 1 MG (0.5 MG, 2 IN 1 D), ORAL
     Route: 048
  2. LAMICTAL [Suspect]
     Indication: DEPRESSION
     Dosage: 200 MG
     Dates: start: 20050101, end: 20050917
  3. ACIPHEX [Suspect]
     Indication: VOCAL CORD DISORDER
     Dates: start: 20050101, end: 20050917
  4. PREDNISONE TAB [Suspect]
     Indication: VOCAL CORD DISORDER
     Dates: start: 20050101, end: 20050917
  5. ALPRAZOLAM [Concomitant]
  6. TOPROL-XL [Concomitant]
  7. FLOMAX ^CHIESI^ (MORNIFLUMATE) [Concomitant]
  8. WARFARIN SODIUM [Concomitant]
  9. VITAMIN CAP [Concomitant]
  10. VITAMIN B COMPLEX CAP [Concomitant]

REACTIONS (5)
  - CHEST PAIN [None]
  - DRUG INEFFECTIVE [None]
  - HEADACHE [None]
  - HYPERTENSION [None]
  - VOCAL CORD INFLAMMATION [None]
